FAERS Safety Report 9607792 (Version 4)
Quarter: 2014Q3

REPORT INFORMATION
  Report Type: Report from Study
  Country: AR (occurrence: AR)
  Receive Date: 20131009
  Receipt Date: 20140702
  Transmission Date: 20150326
  Serious: Yes (Hospitalization)
  Sender: FDA-Public Use
  Company Number: AR-US-EMD SERONO, INC.-7241754

PATIENT
  Sex: Male

DRUGS (1)
  1. REBIF [Suspect]
     Active Substance: INTERFERON BETA-1A
     Indication: MULTIPLE SCLEROSIS
     Dates: start: 20121207

REACTIONS (9)
  - Musculoskeletal disorder [Recovered/Resolved]
  - Central nervous system lesion [Unknown]
  - Feeling abnormal [Unknown]
  - Pyrexia [Unknown]
  - Muscle rigidity [Not Recovered/Not Resolved]
  - Rash [Unknown]
  - Pharyngitis bacterial [Recovered/Resolved]
  - Anaemia [Recovered/Resolved]
  - Fatigue [Unknown]

NARRATIVE: CASE EVENT DATE: 2013
